FAERS Safety Report 10028154 (Version 4)
Quarter: 2014Q2

REPORT INFORMATION
  Report Type: Report from Study
  Country: US (occurrence: US)
  Receive Date: 20140321
  Receipt Date: 20140515
  Transmission Date: 20141212
  Serious: Yes (Hospitalization, Other)
  Sender: FDA-Public Use
  Company Number: US-SA-2014SA014390

PATIENT
  Age: 62 Year
  Sex: Female

DRUGS (1)
  1. AUBAGIO [Suspect]
     Indication: MULTIPLE SCLEROSIS
     Route: 048
     Dates: start: 20131202

REACTIONS (12)
  - Blindness [Unknown]
  - Diarrhoea [Unknown]
  - Amnesia [Unknown]
  - Confusional state [Unknown]
  - Loss of control of legs [Unknown]
  - Eye infection [Unknown]
  - Urinary tract infection [Unknown]
  - Multiple sclerosis relapse [Unknown]
  - Gait disturbance [Unknown]
  - Dysstasia [Unknown]
  - Memory impairment [Unknown]
  - Drug dose omission [Unknown]
